FAERS Safety Report 17193906 (Version 1)
Quarter: 2019Q4

REPORT INFORMATION
  Report Type: Spontaneous
  Country: SE (occurrence: SE)
  Receive Date: 20191223
  Receipt Date: 20191223
  Transmission Date: 20200122
  Serious: Yes (Other)
  Sender: FDA-Public Use
  Company Number: SE-009507513-1912SWE009832

PATIENT
  Age: 60 Year
  Sex: Male

DRUGS (6)
  1. PEMBROLIZUMAB. [Suspect]
     Active Substance: PEMBROLIZUMAB
     Indication: NON-SMALL CELL LUNG CANCER
     Dosage: UNK
     Dates: start: 2019, end: 201907
  2. PEMBROLIZUMAB. [Suspect]
     Active Substance: PEMBROLIZUMAB
     Indication: RENAL CELL CARCINOMA
  3. BRIGATINIB [Suspect]
     Active Substance: BRIGATINIB
     Indication: NON-SMALL CELL LUNG CANCER
     Dosage: UNK
     Dates: start: 201908
  4. ALECTINIB. [Concomitant]
     Active Substance: ALECTINIB
     Indication: NON-SMALL CELL LUNG CANCER
     Dosage: UNK
  5. ALECTINIB. [Concomitant]
     Active Substance: ALECTINIB
     Indication: RENAL CELL CARCINOMA
  6. BRIGATINIB [Suspect]
     Active Substance: BRIGATINIB
     Indication: RENAL CELL CARCINOMA

REACTIONS (3)
  - Drug ineffective [Unknown]
  - Gastrointestinal vascular malformation haemorrhagic [Unknown]
  - Malignant neoplasm progression [Unknown]

NARRATIVE: CASE EVENT DATE: 2019
